FAERS Safety Report 19485029 (Version 1)
Quarter: 2021Q3

REPORT INFORMATION
  Report Type: Spontaneous
  Country: CA (occurrence: CA)
  Receive Date: 20210702
  Receipt Date: 20210702
  Transmission Date: 20211014
  Serious: Yes (Other)
  Sender: FDA-Public Use
  Company Number: CA-TEVA-2021-CA-1901758

PATIENT
  Age: 50 Year
  Sex: Male
  Weight: 85 kg

DRUGS (5)
  1. PREDNISONE. [Suspect]
     Active Substance: PREDNISONE
     Route: 065
  2. PREDNISONE. [Suspect]
     Active Substance: PREDNISONE
     Route: 065
  3. MESALAZINE [Concomitant]
     Active Substance: MESALAMINE
     Dates: start: 2017
  4. PREDNISONE. [Suspect]
     Active Substance: PREDNISONE
     Indication: PRODUCT USED FOR UNKNOWN INDICATION
     Dosage: TAPERING
     Route: 065
     Dates: start: 20201225
  5. INFLECTRA [Concomitant]
     Active Substance: INFLIXIMAB-DYYB
     Indication: COLITIS ULCERATIVE
     Dosage: AT WEEK 0, 2 AND 6, THEN EVERY 8 WEEKS
     Dates: start: 20210216

REACTIONS (4)
  - Haematochezia [Unknown]
  - Drug ineffective [Unknown]
  - Anal incontinence [Unknown]
  - Symptom recurrence [Unknown]

NARRATIVE: CASE EVENT DATE: 2021
